FAERS Safety Report 14038703 (Version 1)
Quarter: 2017Q4

REPORT INFORMATION
  Report Type: Report from Study
  Country: US (occurrence: US)
  Receive Date: 20171004
  Receipt Date: 20171004
  Transmission Date: 20180321
  Serious: Yes (Other)
  Sender: FDA-Public Use
  Company Number: US-CLINIGEN GROUP PLC/ CLINIGEN HEALTHCARE LTD-US-CLGN-17-00319

PATIENT
  Age: 34 Year
  Sex: Female

DRUGS (2)
  1. FOSCARNET SODIUM. [Suspect]
     Active Substance: FOSCARNET SODIUM
     Indication: CYTOMEGALOVIRUS INFECTION
     Route: 042
     Dates: start: 20110511, end: 20110925
  2. VALCYTE [Concomitant]
     Active Substance: VALGANCICLOVIR HYDROCHLORIDE
     Indication: CYTOMEGALOVIRUS INFECTION
     Route: 048
     Dates: start: 20100813, end: 20110511

REACTIONS (3)
  - Renal failure [Recovered/Resolved]
  - Off label use [Recovered/Resolved]
  - Renal transplant failure [Recovered/Resolved]

NARRATIVE: CASE EVENT DATE: 20110511
